FAERS Safety Report 5114935-8 (Version None)
Quarter: 2006Q3

REPORT INFORMATION
  Report Type: 
  Country: None (occurrence: None)
  Receive Date: 20060925
  Receipt Date: 20060925
  Transmission Date: 20061208
  Serious: Yes (Other)
  Sender: FDA-Public Use
  Company Number: None

PATIENT
  Age: 59 Year
  Sex: Male
  Weight: 95.2554 kg

DRUGS (2)
  1. DOXAZOSIN MESYLATE [Suspect]
     Indication: HYPERTENSION
     Dosage: ONE   DAILY   PO
     Route: 048
     Dates: start: 20060530, end: 20060918
  2. DOXAZOSIN MESYLATE [Suspect]
     Indication: PROSTATE EXAMINATION ABNORMAL
     Dosage: ONE   DAILY   PO
     Route: 048
     Dates: start: 20060530, end: 20060918

REACTIONS (3)
  - BLOOD URINE PRESENT [None]
  - DYSURIA [None]
  - URINARY INCONTINENCE [None]
